FAERS Safety Report 9298349 (Version 5)
Quarter: 2014Q1

REPORT INFORMATION
  Report Type: Report from Study
  Country: US (occurrence: US)
  Receive Date: 20130520
  Receipt Date: 20140128
  Transmission Date: 20141002
  Serious: Yes (Hospitalization)
  Sender: FDA-Public Use
  Company Number: US-ACTELION-A-NJ2013-83483

PATIENT
  Age: 83 Year
  Sex: Female

DRUGS (1)
  1. VENTAVIS [Suspect]
     Indication: PULMONARY ARTERIAL HYPERTENSION
     Dosage: UNK
     Route: 055

REACTIONS (7)
  - Cardiac pacemaker insertion [Recovered/Resolved]
  - Dialysis [Unknown]
  - Anaemia [Unknown]
  - Transfusion [Recovered/Resolved]
  - Poor peripheral circulation [Unknown]
  - Drug dose omission [Recovered/Resolved]
  - Vascular graft complication [Unknown]
